FAERS Safety Report 15526482 (Version 2)
Quarter: 2018Q4

REPORT INFORMATION
  Report Type: Report from Study
  Country: CA (occurrence: CA)
  Receive Date: 20181019
  Receipt Date: 20181108
  Transmission Date: 20190205
  Serious: Yes (Hospitalization, Other)
  Sender: FDA-Public Use
  Company Number: CA-REGENERON PHARMACEUTICALS, INC.-2018-30502

PATIENT

DRUGS (1)
  1. EYLEA [Suspect]
     Active Substance: AFLIBERCEPT
     Indication: DIABETIC RETINAL OEDEMA
     Dosage: UNK, HAD ONLY 2 INJECTIONS IN RIGHT EYE
     Dates: start: 20160929

REACTIONS (5)
  - Cataract [Unknown]
  - Post-traumatic stress disorder [Unknown]
  - Musculoskeletal disorder [Unknown]
  - Myocardial infarction [Unknown]
  - Poisoning [Unknown]

NARRATIVE: CASE EVENT DATE: 2016
